FAERS Safety Report 5486798-2 (Version None)
Quarter: 2007Q4

REPORT INFORMATION
  Report Type: 
  Country: None (occurrence: None)
  Receive Date: 20071012
  Receipt Date: 20071012
  Transmission Date: 20080405
  Serious: Yes (Life-Threatening, Hospitalization)
  Sender: FDA-Public Use
  Company Number: None

PATIENT
  Age: 56 Year
  Sex: Female
  Weight: 157 kg

DRUGS (2)
  1. AVASTIN [Suspect]
     Indication: NON-SMALL CELL LUNG CANCER METASTATIC
     Dates: start: 20070301, end: 20070401
  2. AVASTIN [Suspect]
     Indication: NON-SMALL CELL LUNG CANCER STAGE IV
     Dates: start: 20070301, end: 20070401

REACTIONS (5)
  - CARDIAC TAMPONADE [None]
  - DISEASE PROGRESSION [None]
  - DYSARTHRIA [None]
  - HEMIPARESIS [None]
  - PERICARDIAL EFFUSION [None]
